FAERS Safety Report 21301924 (Version 1)
Quarter: 2022Q3

REPORT INFORMATION
  Report Type: Spontaneous
  Country: AR (occurrence: AR)
  Receive Date: 20220907
  Receipt Date: 20220907
  Transmission Date: 20221026
  Serious: Yes (Other)
  Sender: FDA-Public Use
  Company Number: AR-PFIZER INC-PV202200057642

PATIENT
  Age: 82 Year
  Sex: Male

DRUGS (2)
  1. SUTENT [Suspect]
     Active Substance: SUNITINIB MALATE
     Dosage: 50 MG
  2. ZOLEDRONIC ACID [Concomitant]
     Active Substance: ZOLEDRONIC ACID

REACTIONS (5)
  - Nephrectomy [Unknown]
  - Atelectasis [Unknown]
  - Diastasis recti abdominis [Unknown]
  - Umbilical hernia [Unknown]
  - Skeletal injury [Unknown]
